FAERS Safety Report 8712257 (Version 2)
Quarter: 2012Q4

REPORT INFORMATION
  Report Type: 
  Country: US (occurrence: US)
  Receive Date: 20120808
  Receipt Date: 20121022
  Transmission Date: 20130627
  Serious: Yes (Death)
  Sender: FDA-Public Use
  Company Number: US-BRISTOL-MYERS SQUIBB COMPANY-16827974

PATIENT

DRUGS (1)
  1. YERVOY [Suspect]
     Dosage: Exp date: Jun2014, Str: 50mg/ml, 200mg/40ml(NDC:00003-2328-22)

REACTIONS (1)
  - Malignant neoplasm progression [Fatal]
